FAERS Safety Report 18820907 (Version 1)
Quarter: 2021Q1

REPORT INFORMATION
  Report Type: Spontaneous
  Country: US (occurrence: US)
  Receive Date: 20210202
  Receipt Date: 20210202
  Transmission Date: 20210419
  Serious: No
  Sender: FDA-Public Use
  Company Number: US-ELI_LILLY_AND_COMPANY-US202101003755

PATIENT
  Age: 69 Year
  Sex: Female

DRUGS (1)
  1. BAMLANIVIMAB. [Suspect]
     Active Substance: BAMLANIVIMAB
     Indication: COVID-19
     Dosage: UNK UNK, SINGLE
     Route: 065
     Dates: start: 20210108, end: 20210108

REACTIONS (3)
  - Arthralgia [Unknown]
  - Hypoaesthesia [Unknown]
  - Chills [Unknown]

NARRATIVE: CASE EVENT DATE: 20210108
